FAERS Safety Report 9469139 (Version 1)
Quarter: 2013Q3

REPORT INFORMATION
  Report Type: Spontaneous
  Country: US (occurrence: US)
  Receive Date: 20130821
  Receipt Date: 20130821
  Transmission Date: 20140515
  Serious: No
  Sender: FDA-Public Use
  Company Number: US-NOVEN-13US007125

PATIENT
  Age: 57 Year
  Sex: Female

DRUGS (3)
  1. MINIVELLE [Suspect]
     Indication: HOT FLUSH
     Dosage: 0.075 MG, UNK
     Route: 062
     Dates: start: 201303, end: 201306
  2. PROGESTIN [Concomitant]
     Indication: HOT FLUSH
  3. PROGESTIN [Concomitant]
     Indication: MENOPAUSE

REACTIONS (2)
  - Hot flush [Recovered/Resolved]
  - Fungal infection [Recovered/Resolved]
